FAERS Safety Report 5396761-8 (Version None)
Quarter: 2007Q3

REPORT INFORMATION
  Report Type: 
  Country: None (occurrence: None)
  Receive Date: 20070725
  Receipt Date: 20070713
  Transmission Date: 20080115
  Serious: Yes (Life-Threatening, Hospitalization, Other)
  Sender: FDA-Public Use
  Company Number: FR-ROCHE-477392

PATIENT
  Age: 87 Year
  Sex: Female

DRUGS (3)
  1. ROCEPHIN [Suspect]
     Indication: PYELONEPHRITIS
     Dosage: STOPPED AFTER FOUR INJECTIONS.
     Route: 065
     Dates: start: 20061223, end: 20061227
  2. TAZOCILLINE [Suspect]
     Indication: DRUG USE FOR UNKNOWN INDICATION
     Route: 065
  3. AMIKLIN [Concomitant]

REACTIONS (2)
  - APLASIA [None]
  - SIGMOIDITIS [None]
